FAERS Safety Report 7516815-7 (Version None)
Quarter: 2011Q2

REPORT INFORMATION
  Report Type: 
  Country: None (occurrence: None)
  Receive Date: 20110601
  Receipt Date: 20110526
  Transmission Date: 20111010
  Serious: Yes (Other)
  Sender: FDA-Public Use
  Company Number: FR-MERCK-1105FRA00134

PATIENT
  Age: 78 Year
  Sex: Female

DRUGS (8)
  1. FOSAMAX [Concomitant]
     Route: 065
  2. ACETAMINOPHEN [Concomitant]
     Indication: OSTEOARTHRITIS
     Route: 065
  3. CHONDROITIN SULFATE SODIUM [Concomitant]
     Route: 065
  4. LORAZEPAM [Concomitant]
     Route: 065
  5. ACEBUTOLOL HYDROCHLORIDE [Concomitant]
     Route: 065
  6. SINEMET [Suspect]
     Indication: PARKINSON'S DISEASE
     Route: 048
     Dates: start: 20090101
  7. VENLAFAXINE HYDROCHLORIDE [Concomitant]
     Indication: DEPRESSION
     Route: 065
  8. LERCANIDIPINE HYDROCHLORIDE [Concomitant]
     Indication: HYPERTENSION
     Route: 065

REACTIONS (2)
  - BASAL CELL CARCINOMA [None]
  - SQUAMOUS CELL CARCINOMA [None]
